FAERS Safety Report 18555848 (Version 3)
Quarter: 2021Q1

REPORT INFORMATION
  Report Type: Spontaneous
  Country: DE (occurrence: DE)
  Receive Date: 20201127
  Receipt Date: 20210222
  Transmission Date: 20210419
  Serious: Yes (Death, Life-Threatening, Hospitalization, Other)
  Sender: FDA-Public Use
  Company Number: NVSC2020DE316838

PATIENT
  Sex: Male
  Weight: 70 kg

DRUGS (5)
  1. KYMRIAH [Suspect]
     Active Substance: TISAGENLECLEUCEL
     Indication: DIFFUSE LARGE B-CELL LYMPHOMA
     Dosage: UNK, ONCE/SINGLE (4.8E8 CAR?POSITIVE VIABLE T CELLS)
     Route: 041
     Dates: start: 20201019
  2. FLUCONAZOLE. [Concomitant]
     Active Substance: FLUCONAZOLE
     Indication: PRODUCT USED FOR UNKNOWN INDICATION
     Dosage: 200 UNK, QD
     Route: 065
  3. FLUDARABINE [Concomitant]
     Active Substance: FLUDARABINE PHOSPHATE
     Indication: CHEMOTHERAPY
     Dosage: 30 MG/M2 (1380 MG TOTAL DOSE)
     Route: 065
     Dates: start: 20201014, end: 20201016
  4. ACICLOVIR [Concomitant]
     Active Substance: ACYCLOVIR
     Indication: PRODUCT USED FOR UNKNOWN INDICATION
     Dosage: 400 MG, BID
     Route: 065
  5. CYCLOPHOSPHAMIDE. [Concomitant]
     Active Substance: CYCLOPHOSPHAMIDE
     Indication: CHEMOTHERAPY
     Dosage: 250 MG/M2, QD (138 MG TOTAL DOSE)
     Route: 065
     Dates: start: 20201014, end: 20201016

REACTIONS (31)
  - Sepsis [Fatal]
  - Immune effector cell-associated neurotoxicity syndrome [Not Recovered/Not Resolved]
  - Delirium [Unknown]
  - Anaemia [Recovered/Resolved]
  - Hypocalcaemia [Unknown]
  - Hypertension [Unknown]
  - Bone marrow failure [Not Recovered/Not Resolved]
  - Ascites [Unknown]
  - International normalised ratio abnormal [Unknown]
  - Prothrombin time prolonged [Recovered/Resolved]
  - Pneumonia [Fatal]
  - Neutropenia [Not Recovered/Not Resolved]
  - Hepatosplenomegaly [Unknown]
  - Ventricular tachycardia [Unknown]
  - Thrombocytopenia [Not Recovered/Not Resolved]
  - Dysarthria [Unknown]
  - Bacterial infection [Unknown]
  - Refeeding syndrome [Not Recovered/Not Resolved]
  - Encephalopathy [Unknown]
  - Hypotension [Unknown]
  - Antithrombin III increased [Unknown]
  - Troponin increased [Unknown]
  - Hypophosphataemia [Unknown]
  - Dysphagia [Unknown]
  - Hepatic cyst [Unknown]
  - Hypofibrinogenaemia [Unknown]
  - Haemorrhage [Unknown]
  - Acute kidney injury [Recovered/Resolved]
  - Cytokine release syndrome [Unknown]
  - Pyrexia [Unknown]
  - Tongue biting [Unknown]

NARRATIVE: CASE EVENT DATE: 20201026
